FAERS Safety Report 17354847 (Version 2)
Quarter: 2020Q1

REPORT INFORMATION
  Report Type: Spontaneous
  Country: US (occurrence: US)
  Receive Date: 20200131
  Receipt Date: 20200320
  Transmission Date: 20200409
  Serious: No
  Sender: FDA-Public Use
  Company Number: US-PFIZER INC-2020040473

PATIENT
  Age: 39 Year
  Sex: Female

DRUGS (1)
  1. IBRANCE [Suspect]
     Active Substance: PALBOCICLIB
     Indication: BREAST CANCER FEMALE
     Dosage: 125 MG, CYCLIC (1 PO DAILY FOR 21 DAYS)
     Route: 048
     Dates: start: 20200127

REACTIONS (5)
  - Pruritus [Unknown]
  - Dizziness [Unknown]
  - Dry skin [Unknown]
  - Hot flush [Unknown]
  - Nausea [Unknown]
